FAERS Safety Report 4451281-X (Version None)
Quarter: 2004Q3

REPORT INFORMATION
  Report Type: 
  Country: None (occurrence: None)
  Receive Date: 20040915
  Receipt Date: 20040915
  Transmission Date: 20050211
  Serious: Yes (Other)
  Sender: FDA-Public Use
  Company Number: None

PATIENT
  Age: 39 Year
  Sex: Male
  Weight: 92.9874 kg

DRUGS (1)
  1. VIOXX [Suspect]
     Indication: BACK PAIN
     Dosage: 25MG  DAILY  ORAL
     Route: 048
     Dates: start: 20040830, end: 20040930

REACTIONS (13)
  - BACK PAIN [None]
  - CHILLS [None]
  - CONVULSION [None]
  - DIARRHOEA [None]
  - DIZZINESS [None]
  - DRUG HYPERSENSITIVITY [None]
  - ERYTHEMA [None]
  - FOOD POISONING [None]
  - FORMICATION [None]
  - HAEMATOCHEZIA [None]
  - HYPOAESTHESIA [None]
  - PAIN OF SKIN [None]
  - VOMITING [None]
